FAERS Safety Report 6610050-2 (Version None)
Quarter: 2010Q1

REPORT INFORMATION
  Report Type: 
  Country: None (occurrence: None)
  Receive Date: 20100219
  Receipt Date: 20100209
  Transmission Date: 20100710
  Serious: Yes (Hospitalization)
  Sender: FDA-Public Use
  Company Number: 230220J10BRA

PATIENT
  Age: 40 Year
  Sex: Female

DRUGS (2)
  1. REBIF [Suspect]
     Indication: RELAPSING-REMITTING MULTIPLE SCLEROSIS
     Dosage: 44 MCG, 3 IN WEEKS
     Dates: start: 20090107
  2. RIVOTRIL (CLONAZEPAM) [Concomitant]

REACTIONS (2)
  - OOPHORECTOMY [None]
  - WEIGHT DECREASED [None]
